FAERS Safety Report 15653503 (Version 1)
Quarter: 2018Q4

REPORT INFORMATION
  Report Type: Spontaneous
  Country: US (occurrence: US)
  Receive Date: 20181124
  Receipt Date: 20181124
  Transmission Date: 20190205
  Serious: No
  Sender: FDA-Public Use
  Company Number: US-TEVA-2018-US-977634

PATIENT
  Sex: Male

DRUGS (1)
  1. CLONAZEPAM ACTAVIS [Suspect]
     Active Substance: CLONAZEPAM
     Dosage: ABOUT 4 MONTHS AGO
     Route: 065

REACTIONS (4)
  - Limb injury [Unknown]
  - Drug ineffective [Unknown]
  - Product substitution issue [Unknown]
  - Fall [Unknown]
